FAERS Safety Report 9053688 (Version 1)
Quarter: 2013Q1

REPORT INFORMATION
  Report Type: Spontaneous
  Country: JP (occurrence: JP)
  Receive Date: 20130208
  Receipt Date: 20130208
  Transmission Date: 20140127
  Serious: Yes (Other)
  Sender: FDA-Public Use
  Company Number: PHHY2013JP011412

PATIENT
  Sex: 0

DRUGS (1)
  1. NEORAL [Suspect]
     Indication: STEM CELL TRANSPLANT
     Route: 048

REACTIONS (1)
  - Post transplant distal limb syndrome [Unknown]
